FAERS Safety Report 6843596-2 (Version None)
Quarter: 2010Q3

REPORT INFORMATION
  Report Type: 
  Country: None (occurrence: None)
  Receive Date: 20100715
  Receipt Date: 20100614
  Transmission Date: 20110219
  Serious: No
  Sender: FDA-Public Use
  Company Number: US-BAYER-201016825BCC

PATIENT
  Age: 55 Year
  Sex: Female

DRUGS (1)
  1. FINACEA [Suspect]
     Indication: ROSACEA
     Route: 061
     Dates: start: 20100610, end: 20100614

REACTIONS (4)
  - APPLICATION SITE PAIN [None]
  - EYE PAIN [None]
  - PAIN [None]
  - RASH PAPULAR [None]
